FAERS Safety Report 22048423 (Version 3)
Quarter: 2023Q2

REPORT INFORMATION
  Report Type: Spontaneous
  Country: US (occurrence: US)
  Receive Date: 20230301
  Receipt Date: 20230527
  Transmission Date: 20230721
  Serious: No
  Sender: FDA-Public Use
  Company Number: US-GSKCCFUS-Case-01634266_AE-92273

PATIENT
  Sex: Male

DRUGS (2)
  1. ADVAIR DISKUS [Suspect]
     Active Substance: FLUTICASONE PROPIONATE\SALMETEROL XINAFOATE
     Indication: Chronic obstructive pulmonary disease
     Dosage: UNK (500/50 MCG)
  2. PLAVIX [Concomitant]
     Active Substance: CLOPIDOGREL BISULFATE
     Indication: Product used for unknown indication
     Dosage: UNK

REACTIONS (8)
  - Dyspnoea [Unknown]
  - Gait inability [Unknown]
  - Malaise [Unknown]
  - Pain in extremity [Unknown]
  - Condition aggravated [Unknown]
  - Overdose [Unknown]
  - Drug ineffective [Unknown]
  - Product complaint [Unknown]
